FAERS Safety Report 15398264 (Version 1)
Quarter: 2018Q3

REPORT INFORMATION
  Report Type: Spontaneous
  Country: US (occurrence: US)
  Receive Date: 20180918
  Receipt Date: 20180918
  Transmission Date: 20181010
  Serious: No
  Sender: FDA-Public Use
  Company Number: US-ENDO PHARMACEUTICALS INC-2018-039482

PATIENT
  Age: 41 Year
  Sex: Female

DRUGS (2)
  1. CLOMIPHENE CITRATE. [Suspect]
     Active Substance: CLOMIPHENE CITRATE
     Indication: INFERTILITY
     Dosage: 100 MG, DAILY
     Route: 048
     Dates: start: 20180516, end: 20180518
  2. PROGESTERON [Concomitant]
     Active Substance: PROGESTERONE
     Dosage: UNK UNKNOWN, UNKNOWN
     Route: 065

REACTIONS (5)
  - Skin burning sensation [Recovered/Resolved]
  - Paraesthesia [Not Recovered/Not Resolved]
  - Product quality issue [Unknown]
  - Blood pressure increased [Recovered/Resolved]
  - Hypoaesthesia [Recovered/Resolved]

NARRATIVE: CASE EVENT DATE: 201805
